FAERS Safety Report 6131848-3 (Version None)
Quarter: 2009Q1

REPORT INFORMATION
  Report Type: 
  Country: None (occurrence: None)
  Receive Date: 20090325
  Receipt Date: 20090313
  Transmission Date: 20090719
  Serious: Yes (Hospitalization)
  Sender: FDA-Public Use
  Company Number: FR-JNJFOC-20090305956

PATIENT
  Sex: Female

DRUGS (15)
  1. TOPALGIC [Suspect]
     Indication: PAIN
     Route: 048
     Dates: start: 20080728, end: 20080802
  2. ARIXTRA [Suspect]
     Indication: PROPHYLAXIS
     Route: 058
  3. PENICILLIN G [Suspect]
     Indication: SKIN INFECTION
     Route: 042
  4. CLAMOXYL [Suspect]
     Indication: SKIN INFECTION
     Route: 042
  5. GENTALLINE [Suspect]
     Indication: SKIN INFECTION
     Route: 042
  6. MOPRAL [Suspect]
     Indication: PROPHYLAXIS
     Route: 042
  7. AUGMENTIN [Suspect]
     Indication: SKIN INFECTION
     Route: 048
  8. DALACIN [Suspect]
     Indication: SKIN INFECTION
     Route: 048
  9. ACUPAN [Suspect]
     Indication: PAIN
     Route: 042
  10. DOLIPRANE [Concomitant]
     Route: 065
  11. PERFALGAN [Concomitant]
     Route: 065
  12. LOVENOX [Concomitant]
     Route: 065
  13. INIPOMP [Concomitant]
     Route: 065
  14. FLAGYL [Concomitant]
     Route: 065
  15. PYOSTACINE [Concomitant]
     Route: 065

REACTIONS (1)
  - ACUTE GENERALISED EXANTHEMATOUS PUSTULOSIS [None]
